FAERS Safety Report 14216097 (Version 2)
Quarter: 2018Q1

REPORT INFORMATION
  Report Type: Spontaneous
  Country: US (occurrence: US)
  Receive Date: 20171122
  Receipt Date: 20180110
  Transmission Date: 20180508
  Serious: No
  Sender: FDA-Public Use
  Company Number: US-PFIZER INC-2017170342

PATIENT
  Age: 9 Year
  Sex: Female
  Weight: 29.3 kg

DRUGS (1)
  1. GENOTROPIN [Suspect]
     Active Substance: SOMATROPIN
     Indication: GROWTH HORMONE DEFICIENCY
     Dosage: 1 MG, 1X/DAY (BEFORE BEDTIME)
     Route: 058
     Dates: start: 20161229

REACTIONS (4)
  - Drug dose omission [Unknown]
  - Injection site pain [Recovered/Resolved]
  - Device issue [Unknown]
  - Product storage error [Unknown]

NARRATIVE: CASE EVENT DATE: 20171111
